FAERS Safety Report 9738329 (Version 5)
Quarter: 2014Q3

REPORT INFORMATION
  Report Type: Spontaneous
  Country: US (occurrence: US)
  Receive Date: 20131208
  Receipt Date: 20140804
  Transmission Date: 20150326
  Serious: Yes (Hospitalization, Other)
  Sender: FDA-Public Use
  Company Number: US-009507513-1312USA001732

PATIENT
  Sex: Female
  Weight: 79.37 kg

DRUGS (4)
  1. FOSAMAX [Suspect]
     Active Substance: ALENDRONATE SODIUM
     Dosage: UNK
     Route: 048
     Dates: start: 19980527, end: 20050226
  2. FOSAMAX PLUS D [Suspect]
     Active Substance: ALENDRONATE SODIUM\CHOLECALCIFEROL
     Indication: OSTEOPOROSIS
     Dosage: 70-2800 MG
     Route: 048
     Dates: start: 20060505, end: 20080429
  3. FOSAMAX [Suspect]
     Active Substance: ALENDRONATE SODIUM
     Indication: OSTEOPOROSIS
     Dosage: 70 MG, UNK
     Route: 048
  4. ALENDRONATE SODIUM. [Suspect]
     Active Substance: ALENDRONATE SODIUM
     Indication: OSTEOPOROSIS
     Dosage: 70 MG, UNK
     Route: 048
     Dates: start: 20080527, end: 200910

REACTIONS (79)
  - Breast reconstruction [Unknown]
  - Vertigo [Unknown]
  - Adverse event [Unknown]
  - Osteoarthritis [Unknown]
  - Coronary artery disease [Unknown]
  - Breast pain [Unknown]
  - Pain in extremity [Unknown]
  - Vertebroplasty [Unknown]
  - Anoplasty [Unknown]
  - Paraesthesia [Unknown]
  - Groin pain [Unknown]
  - Hypothyroidism [Unknown]
  - Ankle fracture [Unknown]
  - Vertebroplasty [Unknown]
  - Multiple fractures [Unknown]
  - Arthropathy [Unknown]
  - Knee operation [Unknown]
  - Vitamin D deficiency [Unknown]
  - Skin abrasion [Unknown]
  - Tonsillectomy [Unknown]
  - Rib deformity [Unknown]
  - Pain in extremity [Unknown]
  - Muscle spasms [Unknown]
  - Modified radical mastectomy [Unknown]
  - Shoulder arthroplasty [Unknown]
  - Low turnover osteopathy [Unknown]
  - Radiculopathy [Unknown]
  - Adverse event [Unknown]
  - Fracture malunion [Unknown]
  - Haemorrhagic anaemia [Unknown]
  - Facial operation [Unknown]
  - Infection [Unknown]
  - Pain in extremity [Unknown]
  - Arthralgia [Unknown]
  - Invasive ductal breast carcinoma [Unknown]
  - Gait disturbance [Unknown]
  - Rotator cuff repair [Unknown]
  - Bone disorder [Unknown]
  - Hypercholesterolaemia [Unknown]
  - Hypertension [Unknown]
  - Arthropathy [Unknown]
  - Spinal compression fracture [Unknown]
  - Breast calcifications [Unknown]
  - Thrombocytopenia [Unknown]
  - Metastases to bone [Unknown]
  - Ankle fracture [Unknown]
  - Fall [Unknown]
  - Constipation [Unknown]
  - Dental care [Unknown]
  - Skeletal injury [Unknown]
  - Musculoskeletal pain [Unknown]
  - Musculoskeletal pain [Unknown]
  - Drug ineffective [Unknown]
  - Femur fracture [Recovered/Resolved]
  - Humerus fracture [Unknown]
  - Hip surgery [Unknown]
  - Hypoaesthesia [Unknown]
  - Arthritis [Unknown]
  - Arthritis bacterial [Unknown]
  - Anorectal disorder [Unknown]
  - Musculoskeletal pain [Unknown]
  - Shoulder arthroplasty [Unknown]
  - Muscle spasms [Unknown]
  - Spinal compression fracture [Unknown]
  - Tenosynovitis [Unknown]
  - Leukocytosis [Recovered/Resolved]
  - Thrombosis [Unknown]
  - Spinal compression fracture [Unknown]
  - Back pain [Unknown]
  - Arthralgia [Unknown]
  - Arthralgia [Unknown]
  - Dyspepsia [Unknown]
  - Intramedullary rod insertion [Unknown]
  - Lumbar vertebral fracture [Unknown]
  - Tooth extraction [Unknown]
  - Angina pectoris [Unknown]
  - Knee arthroplasty [Unknown]
  - Spinal osteoarthritis [Unknown]
  - Drug ineffective [Unknown]

NARRATIVE: CASE EVENT DATE: 1996
